FAERS Safety Report 6981047-8 (Version None)
Quarter: 2010Q3

REPORT INFORMATION
  Report Type: 
  Country: None (occurrence: None)
  Receive Date: 20100914
  Receipt Date: 20100907
  Transmission Date: 20110219
  Serious: Yes (Hospitalization)
  Sender: FDA-Public Use
  Company Number: ES-TEVA-247512ISR

PATIENT
  Age: 80 Year
  Sex: Female

DRUGS (6)
  1. CODEINE [Suspect]
     Route: 048
     Dates: start: 20100611, end: 20100709
  2. ENALAPRIL [Suspect]
     Route: 048
     Dates: start: 20100611, end: 20100709
  3. CALCIUM CARBONATE W/COLECALCIFEROL [Suspect]
     Route: 048
     Dates: start: 20100611, end: 20100709
  4. DOMPERIDONE [Suspect]
     Route: 048
     Dates: start: 20100611, end: 20100709
  5. DIPYRONE TAB [Suspect]
     Route: 048
     Dates: start: 20100611, end: 20100709
  6. TIOTROPIUM BROMIDE [Suspect]
     Route: 055
     Dates: start: 20100611, end: 20100709

REACTIONS (1)
  - ERYTHEMA MULTIFORME [None]
